FAERS Safety Report 5314729-4 (Version None)
Quarter: 2007Q2

REPORT INFORMATION
  Report Type: 
  Country: None (occurrence: None)
  Receive Date: 20070427
  Receipt Date: 20070416
  Transmission Date: 20071010
  Serious: Yes (Life-Threatening, Hospitalization)
  Sender: FDA-Public Use
  Company Number: GXKR2007GB03543

PATIENT
  Age: 47 Year
  Sex: Female

DRUGS (1)
  1. METRONIDAZOLE [Suspect]
     Indication: TOOTH ABSCESS
     Dosage: 400 MG, ORAL
     Route: 048
     Dates: start: 20070322, end: 20070324

REACTIONS (2)
  - SERUM SICKNESS [None]
  - TYPE IV HYPERSENSITIVITY REACTION [None]
